FAERS Safety Report 8289567 (Version 2)
Quarter: 2013Q1

REPORT INFORMATION
  Report Type: Spontaneous
  Country: US (occurrence: US)
  Receive Date: 20111214
  Receipt Date: 20130204
  Transmission Date: 20140127
  Serious: No
  Sender: FDA-Public Use
  Company Number: US-AMGEN-USASP2011054684

PATIENT
  Age: 48 Year
  Sex: Female

DRUGS (10)
  1. ENBREL [Suspect]
     Indication: PSORIASIS
     Dosage: 25 MG, QWK
     Route: 058
     Dates: start: 20111017
  2. ENBREL [Suspect]
     Indication: PSORIATIC ARTHROPATHY
  3. CLOBEX                             /00012002/ [Concomitant]
     Indication: PSORIASIS
     Dosage: UNK, BID
     Route: 061
     Dates: start: 20110927
  4. MELOXICAM [Concomitant]
     Indication: MIGRAINE
     Dosage: UNK , PRN
     Route: 048
  5. MELOXICAM [Concomitant]
     Dosage: 15 MG, UNK
  6. HORMONES [Concomitant]
     Indication: MENOPAUSE
     Dosage: UNK UNK, DAILY
     Route: 061
  7. BONIVA [Concomitant]
     Dosage: 150 MG, UNK
  8. MULTIVITAMINS, PLAIN [Concomitant]
     Dosage: UNK
  9. BUPROPION [Concomitant]
     Dosage: 150 MG, UNK
  10. EEMT [Concomitant]
     Dosage: UNK

REACTIONS (7)
  - Depression [Not Recovered/Not Resolved]
  - Arthralgia [Unknown]
  - Fatigue [Not Recovered/Not Resolved]
  - Asthenia [Not Recovered/Not Resolved]
  - Pain [Not Recovered/Not Resolved]
  - Influenza like illness [Unknown]
  - Mental impairment [Not Recovered/Not Resolved]
